FAERS Safety Report 4385416-4 (Version None)
Quarter: 2004Q2

REPORT INFORMATION
  Report Type: 
  Country: None (occurrence: None)
  Receive Date: 20040622
  Receipt Date: 20040607
  Transmission Date: 20050107
  Serious: Yes (Hospitalization)
  Sender: FDA-Public Use
  Company Number: 192394

PATIENT
  Sex: Female

DRUGS (1)
  1. AVONEX [Suspect]
     Indication: MULTIPLE SCLEROSIS
     Dosage: 30 MCG QW IM
     Route: 030
     Dates: start: 19980101, end: 20031201

REACTIONS (5)
  - CHOLELITHIASIS [None]
  - ESCHERICHIA INFECTION [None]
  - IATROGENIC INJURY [None]
  - OESOPHAGEAL STENOSIS [None]
  - PROCEDURAL COMPLICATION [None]
